FAERS Safety Report 21565188 (Version 1)
Quarter: 2022Q4

REPORT INFORMATION
  Report Type: Spontaneous
  Country: US (occurrence: US)
  Receive Date: 20221108
  Receipt Date: 20221108
  Transmission Date: 20230113
  Serious: Yes (Other)
  Sender: FDA-Public Use
  Company Number: US-BRISTOL-MYERS SQUIBB COMPANY-2022-133430

PATIENT
  Age: 85 Year
  Sex: Female

DRUGS (1)
  1. REVLIMID [Suspect]
     Active Substance: LENALIDOMIDE
     Indication: Product used for unknown indication
     Dosage: AKE 1 CAPSULE BY MOUTH DAILY FOR 12 OUT OF 21 DAYS, FOLLOWED BY 7 DAYS OFF
     Route: 048
     Dates: start: 20220119

REACTIONS (2)
  - Adverse event [Unknown]
  - Off label use [Unknown]
